FAERS Safety Report 9457240 (Version 2)
Quarter: 2013Q3

REPORT INFORMATION
  Report Type: Spontaneous
  Country: ES (occurrence: ES)
  Receive Date: 20130814
  Receipt Date: 20130910
  Transmission Date: 20140515
  Serious: Yes (Other)
  Sender: FDA-Public Use
  Company Number: ES-AMGEN-ESPSP2013056726

PATIENT
  Age: 32 Year
  Sex: Female

DRUGS (9)
  1. ENBREL [Suspect]
     Indication: RHEUMATOID ARTHRITIS
     Dosage: 50 MG, WEEKLY
     Route: 058
     Dates: start: 201303
  2. DACORTIN [Suspect]
     Indication: RHEUMATOID ARTHRITIS
     Dosage: 20 MG, PER DAY
     Route: 048
  3. DACORTIN [Suspect]
     Dosage: 10 MG, PER DAY
     Route: 048
  4. DACORTIN [Suspect]
     Dosage: 7.5 MG, PER DAY
     Route: 048
  5. DACORTIN [Suspect]
     Dosage: 5 MG, PER DAY
     Route: 048
     Dates: end: 20130714
  6. DACORTIN [Suspect]
     Dosage: 2.5 MG, PER DAY
     Route: 048
     Dates: start: 20130715
  7. ARAVA [Concomitant]
     Indication: RHEUMATOID ARTHRITIS
     Dosage: 20 MG, PER DAY
  8. ACREL [Concomitant]
     Indication: OSTEOPOROSIS
     Dosage: 75 MG, 2 TABLETS PER MONTH
  9. HIDROFEROL [Concomitant]
     Indication: OSTEOPOROSIS
     Dosage: 1 AMPOULE PER MONTH

REACTIONS (1)
  - Rheumatoid arthritis [Recovering/Resolving]
